FAERS Safety Report 8542046-8 (Version None)
Quarter: 2012Q3

REPORT INFORMATION
  Report Type: 
  Country: None (occurrence: None)
  Receive Date: 20120726
  Receipt Date: 20111003
  Transmission Date: 20120928
  Serious: No
  Sender: FDA-Public Use
  Company Number: US-ASTRAZENECA-2011SE59546

PATIENT
  Age: 47 Year
  Sex: Male

DRUGS (13)
  1. DEPAKOTE ER [Concomitant]
     Dosage: 500 MG 3 PILLS
  2. LUNESTA [Concomitant]
     Indication: SLEEP DISORDER THERAPY
  3. VITAMIN E [Concomitant]
  4. SEROQUEL [Suspect]
     Indication: BIPOLAR DISORDER
     Route: 048
  5. ZOCOR [Concomitant]
  6. TRICOR [Concomitant]
  7. TAMSULOSIN HCL [Concomitant]
  8. MELATONINE [Concomitant]
  9. LISINOPRIL [Concomitant]
  10. ANDROGEL [Concomitant]
  11. GEODON [Concomitant]
     Dosage: 80 MG 2 PILLS T
  12. VITAMIN D [Concomitant]
     Dosage: 5000 DIU SOFT GEL SDK ONE PILL ONCE A WEEK
  13. FLUSH FREE NIACIN [Concomitant]

REACTIONS (3)
  - SLEEP APNOEA SYNDROME [None]
  - BLOOD TESTOSTERONE DECREASED [None]
  - TYPE 2 DIABETES MELLITUS [None]
